FAERS Safety Report 23822746 (Version 1)
Quarter: 2024Q2

REPORT INFORMATION
  Report Type: Spontaneous
  Country: CN (occurrence: CN)
  Receive Date: 20240506
  Receipt Date: 20240506
  Transmission Date: 20240716
  Serious: Yes (Hospitalization, Other)
  Sender: FDA-Public Use
  Company Number: CN-ADMA BIOLOGICS INC.-CN-2024ADM000070

PATIENT
  Age: 64 Year
  Sex: Male

DRUGS (3)
  1. HUMAN IMMUNOGLOBULIN G [Suspect]
     Active Substance: HUMAN IMMUNOGLOBULIN G
     Indication: Dermatitis exfoliative
     Dosage: 0.4 GRAM PER KILOGRAM, QD
     Route: 042
  2. METHYLPREDNISOLONE [Suspect]
     Active Substance: METHYLPREDNISOLONE
     Indication: Dermatitis exfoliative
     Dosage: 40 MG, BID
     Route: 042
  3. METHYLPREDNISOLONE [Suspect]
     Active Substance: METHYLPREDNISOLONE
     Dosage: 60 MG, QD
     Route: 042

REACTIONS (7)
  - Spinal cord infarction [Unknown]
  - Paraplegia [Unknown]
  - Pulmonary embolism [Unknown]
  - Aortic thrombosis [Unknown]
  - Sensory loss [Recovering/Resolving]
  - Urinary incontinence [Unknown]
  - Off label use [Unknown]
